FAERS Safety Report 15242632 (Version 1)
Quarter: 2018Q3

REPORT INFORMATION
  Report Type: Spontaneous
  Country: US (occurrence: US)
  Receive Date: 20180806
  Receipt Date: 20180806
  Transmission Date: 20181010
  Serious: Yes (Hospitalization, Other)
  Sender: FDA-Public Use
  Company Number: US-AUROBINDO-AUR-APL-2018-038099

PATIENT
  Age: 32 Year
  Sex: Female

DRUGS (1)
  1. LOPERAMIDE TABLET [Suspect]
     Active Substance: LOPERAMIDE
     Indication: PRODUCT USED FOR UNKNOWN INDICATION
     Dosage: UP TO 200 TABLETS DAILY
     Route: 065

REACTIONS (8)
  - Vomiting [Unknown]
  - Cardiotoxicity [Unknown]
  - Sinus bradycardia [Unknown]
  - Electrocardiogram QT prolonged [Recovering/Resolving]
  - Drug abuse [Unknown]
  - Ventricular tachycardia [Unknown]
  - Abdominal pain [Unknown]
  - Intentional overdose [Unknown]
